FAERS Safety Report 19738723 (Version 1)
Quarter: 2021Q3

REPORT INFORMATION
  Report Type: Spontaneous
  Country: AR (occurrence: AR)
  Receive Date: 20210824
  Receipt Date: 20210824
  Transmission Date: 20211014
  Serious: Yes (Hospitalization, Other)
  Sender: FDA-Public Use
  Company Number: NVSC2021AR185867

PATIENT
  Age: 60 Year
  Sex: Female

DRUGS (2)
  1. ENTRESTO [Suspect]
     Active Substance: SACUBITRIL\VALSARTAN
     Indication: OEDEMA
     Dosage: 50 MG, BID (IN MORNING AND NIGHT)(2 YEARS AGO)
     Route: 065
  2. ENTRESTO [Suspect]
     Active Substance: SACUBITRIL\VALSARTAN
     Indication: BLOOD PRESSURE ABNORMAL

REACTIONS (11)
  - Pulmonary oedema [Unknown]
  - Vascular graft occlusion [Unknown]
  - Cardiac disorder [Unknown]
  - Hypotension [Unknown]
  - Alopecia [Unknown]
  - Wrong technique in product usage process [Unknown]
  - COVID-19 [Unknown]
  - Product use in unapproved indication [Unknown]
  - Memory impairment [Unknown]
  - Loss of consciousness [Unknown]
  - Implant tissue necrosis [Unknown]

NARRATIVE: CASE EVENT DATE: 202104
